FAERS Safety Report 10950482 (Version 3)
Quarter: 2015Q2

REPORT INFORMATION
  Report Type: Spontaneous
  Country: US (occurrence: US)
  Receive Date: 20150324
  Receipt Date: 20150519
  Transmission Date: 20150821
  Serious: No
  Sender: FDA-Public Use
  Company Number: US-GLAXOSMITHKLINE-US2015GSK026572

PATIENT
  Age: 74 Year
  Sex: Female

DRUGS (5)
  1. LEVOTHYROXINE [Concomitant]
     Active Substance: LEVOTHYROXINE
     Dosage: UNK
     Dates: start: 2000
  2. VALACYCLOVIR [Suspect]
     Active Substance: VALACYCLOVIR HYDROCHLORIDE
     Indication: TONGUE ULCERATION
     Dosage: UNK
     Dates: start: 201410
  3. CALCIUM CARBONATE. [Concomitant]
     Active Substance: CALCIUM CARBONATE
  4. FLUOCINONIDE. [Suspect]
     Active Substance: FLUOCINONIDE
     Indication: TONGUE ULCERATION
     Dosage: UNK
     Dates: start: 201412
  5. TOFACITINIB [Concomitant]
     Active Substance: TOFACITINIB

REACTIONS (2)
  - Insomnia [Recovered/Resolved]
  - Drug ineffective [Not Recovered/Not Resolved]

NARRATIVE: CASE EVENT DATE: 201405
